FAERS Safety Report 8481351-0 (Version None)
Quarter: 2012Q2

REPORT INFORMATION
  Report Type: 
  Country: None (occurrence: None)
  Receive Date: 20120626
  Receipt Date: 20120626
  Transmission Date: 20120825
  Serious: No
  Sender: FDA-Public Use
  Company Number: None

PATIENT
  Age: 65 Year
  Sex: Male
  Weight: 114.8 kg

DRUGS (4)
  1. PREDNISONE TAB [Suspect]
     Indication: CHRONIC OBSTRUCTIVE PULMONARY DISEASE
     Dates: start: 20110903, end: 20110910
  2. PREDNISONE TAB [Suspect]
     Indication: CONDITION AGGRAVATED
     Dates: start: 20110903, end: 20110910
  3. LISINOPRIL [Suspect]
     Indication: HYPERTENSION
     Dosage: 40 MG EVERY DAY PO
     Route: 048
     Dates: start: 20030906, end: 20110905
  4. LISINOPRIL [Suspect]
     Indication: DIABETES MELLITUS
     Dosage: 40 MG EVERY DAY PO
     Route: 048
     Dates: start: 20030906, end: 20110905

REACTIONS (7)
  - THROAT TIGHTNESS [None]
  - CHRONIC OBSTRUCTIVE PULMONARY DISEASE [None]
  - LOCAL SWELLING [None]
  - CONDITION AGGRAVATED [None]
  - BLOOD GLUCOSE INCREASED [None]
  - DRUG HYPERSENSITIVITY [None]
  - DYSPNOEA [None]
